FAERS Safety Report 17667844 (Version 4)
Quarter: 2021Q3

REPORT INFORMATION
  Report Type: Spontaneous
  Country: JP (occurrence: JP)
  Receive Date: 20200414
  Receipt Date: 20210910
  Transmission Date: 20211014
  Serious: Yes (Death, Hospitalization, Other)
  Sender: FDA-Public Use
  Company Number: JP-GILEAD-2020-0458639

PATIENT
  Age: 9 Decade
  Sex: Male

DRUGS (11)
  1. EPCLUSA [Suspect]
     Active Substance: SOFOSBUVIR\VELPATASVIR
     Indication: HEPATITIS C
     Dosage: 400 MG
     Route: 048
     Dates: start: 20200304, end: 20200409
  2. URSO [Concomitant]
     Active Substance: URSODIOL
  3. ARTEMISIA CAPILLARIS FLOWER [Concomitant]
     Active Substance: HERBALS
  4. HEPAACT [Concomitant]
  5. RIFXIMA [Concomitant]
     Active Substance: RIFAXIMIN
  6. NATRIX [Concomitant]
     Active Substance: INDAPAMIDE
  7. BEZAFIBRATE [Concomitant]
     Active Substance: BEZAFIBRATE
  8. NEXIUM [Concomitant]
     Active Substance: ESOMEPRAZOLE MAGNESIUM
  9. EPCLUSA [Suspect]
     Active Substance: SOFOSBUVIR\VELPATASVIR
     Indication: HEPATIC CIRRHOSIS
  10. MONILAC [Concomitant]
     Active Substance: LACTULOSE
  11. CELECOX [Concomitant]
     Active Substance: CELECOXIB

REACTIONS (2)
  - Treatment noncompliance [Unknown]
  - Hepatic failure [Fatal]

NARRATIVE: CASE EVENT DATE: 2020
